FAERS Safety Report 5249861-7 (Version None)
Quarter: 2007Q1

REPORT INFORMATION
  Report Type: 
  Country: None (occurrence: None)
  Receive Date: 20070228
  Receipt Date: 20070223
  Transmission Date: 20070707
  Serious: Yes (Other)
  Sender: FDA-Public Use
  Company Number: DE-GLAXOSMITHKLINE-D0052110A

PATIENT
  Age: 13 Year
  Sex: Male
  Weight: 57 kg

DRUGS (2)
  1. LAMICTAL [Suspect]
     Indication: EPILEPSY
     Dosage: 5MG TWICE PER DAY
     Route: 048
     Dates: start: 20061207
  2. ORFIRIL LONG [Concomitant]
     Route: 048
     Dates: end: 20070109

REACTIONS (5)
  - BLOOD BILIRUBIN INCREASED [None]
  - GILBERT'S SYNDROME [None]
  - NAUSEA [None]
  - OCULAR ICTERUS [None]
  - VOMITING [None]
